FAERS Safety Report 10273097 (Version 1)
Quarter: 2014Q2

REPORT INFORMATION
  Report Type: Spontaneous
  Country: US (occurrence: None)
  Receive Date: 20140627
  Receipt Date: 20140627
  Transmission Date: 20141212
  Serious: Yes (Other)
  Sender: FDA-Public Use
  Company Number: None

PATIENT
  Age: 32 Year
  Sex: Female
  Weight: 97.07 kg

DRUGS (2)
  1. METFORMIN HCL [Suspect]
     Indication: BLOOD GLUCOSE ABNORMAL
     Route: 048
     Dates: start: 201305, end: 201310
  2. GLUMETZA [Concomitant]

REACTIONS (2)
  - Diarrhoea [None]
  - Haemorrhoids [None]
